FAERS Safety Report 17716877 (Version 2)
Quarter: 2020Q4

REPORT INFORMATION
  Report Type: Spontaneous
  Country: US (occurrence: US)
  Receive Date: 20200428
  Receipt Date: 20201015
  Transmission Date: 20210113
  Serious: Yes (Other)
  Sender: FDA-Public Use
  Company Number: US-SA-2020SA104666

PATIENT

DRUGS (5)
  1. RELION/NOVOLIN [Concomitant]
     Dosage: UNK
     Dates: start: 20060831
  2. TAXOTERE [Suspect]
     Active Substance: DOCETAXEL
     Indication: INTRADUCTAL PROLIFERATIVE BREAST LESION
     Dosage: 70 MG, Q3W
     Route: 042
     Dates: start: 20070621, end: 20070621
  3. TAXOTERE [Suspect]
     Active Substance: DOCETAXEL
     Dosage: 70 MG, Q3W
     Route: 042
     Dates: start: 20071116, end: 20071116
  4. LISINOPRIL. [Concomitant]
     Active Substance: LISINOPRIL
     Dosage: UNK
     Dates: start: 20070314
  5. PARAPLATIN [Concomitant]
     Active Substance: CARBOPLATIN
     Indication: INTRADUCTAL PROLIFERATIVE BREAST LESION

REACTIONS (3)
  - Alopecia [Not Recovered/Not Resolved]
  - Psychological trauma [Unknown]
  - Emotional distress [Unknown]
